FAERS Safety Report 7742452-5 (Version None)
Quarter: 2011Q3

REPORT INFORMATION
  Report Type: 
  Country: None (occurrence: None)
  Receive Date: 20110830
  Receipt Date: 20110821
  Transmission Date: 20111222
  Serious: Yes (Other)
  Sender: FDA-Public Use
  Company Number: 2011SP039650

PATIENT
  Sex: Male

DRUGS (3)
  1. RIBAVIRIN [Suspect]
     Indication: HEPATITIS C
     Dates: start: 20110701
  2. VICTRELIS [Suspect]
     Indication: HEPATITIS C
     Dosage: 800 MG, TID, PO
     Route: 048
     Dates: start: 20110701
  3. INTERFERON [Suspect]
     Indication: HEPATITIS C
     Dates: start: 20110701

REACTIONS (4)
  - ASTHENIA [None]
  - NAUSEA [None]
  - DIARRHOEA [None]
  - RENAL FAILURE [None]
